FAERS Safety Report 10204938 (Version 1)
Quarter: 2014Q2

REPORT INFORMATION
  Report Type: Spontaneous
  Country: FR (occurrence: FR)
  Receive Date: 20140529
  Receipt Date: 20140529
  Transmission Date: 20141212
  Serious: Yes (Other)
  Sender: FDA-Public Use
  Company Number: CHPA2014FR007029

PATIENT
  Age: 87 Year
  Sex: Female

DRUGS (4)
  1. FERROUS SULFATE [Suspect]
     Indication: MINERAL SUPPLEMENTATION
     Dosage: 80 MG, QD
     Route: 048
  2. ESOMEPRAZOLE [Concomitant]
     Dosage: 20 MG, QD
  3. MACROGOL [Concomitant]
     Dosage: 10 MG, QID
  4. LYSINE ACETYLSALICYLATE [Concomitant]
     Dosage: 75 MG, QD

REACTIONS (1)
  - Mouth ulceration [Recovered/Resolved]
